FAERS Safety Report 20743500 (Version 2)
Quarter: 2022Q2

REPORT INFORMATION
  Report Type: Spontaneous
  Country: BE (occurrence: BE)
  Receive Date: 20220425
  Receipt Date: 20220606
  Transmission Date: 20220721
  Serious: Yes (Death, Hospitalization, Other)
  Sender: FDA-Public Use
  Company Number: BE-AstraZeneca-2021A709825

PATIENT
  Age: 75 Year
  Sex: Female

DRUGS (60)
  1. PACLITAXEL [Suspect]
     Active Substance: PACLITAXEL
     Indication: Endometrial cancer
     Dosage: 175 MG/M2, EVERY 3 WEEKS
     Route: 042
     Dates: start: 20210729, end: 20210729
  2. PACLITAXEL [Suspect]
     Active Substance: PACLITAXEL
     Dosage: 175 MG/M2, EVERY 3 WEEKS
     Route: 042
     Dates: start: 20210729, end: 20210819
  3. PACLITAXEL [Suspect]
     Active Substance: PACLITAXEL
     Dosage: 175 MG/M2, EVERY 3 WEEKS
     Route: 042
     Dates: start: 20210917, end: 20211007
  4. PACLITAXEL [Suspect]
     Active Substance: PACLITAXEL
     Dosage: 175 MG/M2
     Route: 042
     Dates: start: 20211007, end: 20211007
  5. PACLITAXEL [Suspect]
     Active Substance: PACLITAXEL
     Dosage: 175 MG/M2
     Route: 042
     Dates: start: 20210819, end: 20210819
  6. PACLITAXEL [Suspect]
     Active Substance: PACLITAXEL
     Dosage: 175 MG/M2
     Route: 042
     Dates: start: 20210917, end: 20210917
  7. CARBOPLATIN [Suspect]
     Active Substance: CARBOPLATIN
     Indication: Endometrial cancer
     Dosage: AUC5 OR AUC6, EVERY 3 WEEKS
     Route: 042
     Dates: start: 20210819, end: 20210819
  8. CARBOPLATIN [Suspect]
     Active Substance: CARBOPLATIN
     Dosage: AUC5 OR AUC6, EVERY 3 WEEKS
     Route: 042
     Dates: start: 20210729, end: 20210729
  9. CARBOPLATIN [Suspect]
     Active Substance: CARBOPLATIN
     Dosage: 485 MG, SINGLE
     Route: 042
     Dates: start: 20211007, end: 20211007
  10. CARBOPLATIN [Suspect]
     Active Substance: CARBOPLATIN
     Dosage: 409 MG, SINGLE
     Route: 042
     Dates: start: 20210729, end: 20210729
  11. CARBOPLATIN [Suspect]
     Active Substance: CARBOPLATIN
     Dosage: 241 MG, SINGLE
     Route: 042
     Dates: start: 20210917, end: 20210917
  12. CARBOPLATIN [Suspect]
     Active Substance: CARBOPLATIN
     Dosage: 389 MG, SINGLE
     Route: 042
     Dates: start: 20210819, end: 20210819
  13. DURVALUMAB [Suspect]
     Active Substance: DURVALUMAB
     Indication: Endometrial cancer
     Dosage: 1120 MG, SINGLE
     Route: 042
     Dates: start: 20210729, end: 20210729
  14. DURVALUMAB [Suspect]
     Active Substance: DURVALUMAB
     Dosage: 1120 MG, SINGLE
     Route: 042
     Dates: start: 20210917, end: 20210917
  15. DURVALUMAB [Suspect]
     Active Substance: DURVALUMAB
     Dosage: 1120 MG, SINGLE
     Route: 042
     Dates: start: 20210819, end: 20210819
  16. DURVALUMAB [Suspect]
     Active Substance: DURVALUMAB
     Dosage: 1120 MG, SINGLE
     Route: 042
     Dates: start: 20211007, end: 20211007
  17. FENTANYL [Concomitant]
     Active Substance: FENTANYL
     Indication: Abdominal pain lower
     Dosage: 12 UG
     Route: 062
     Dates: start: 20210606
  18. AMLODIPINE [Concomitant]
     Active Substance: AMLODIPINE BESYLATE
     Indication: Hypertension
     Dosage: 5 MG, 1X/DAY
     Route: 048
     Dates: start: 2011
  19. TRAZODONE [Concomitant]
     Active Substance: TRAZODONE HYDROCHLORIDE
     Indication: Pain
     Dosage: 100 MG, AS NEEDED
     Route: 048
     Dates: start: 20210605
  20. PALONOSETRON HYDROCHLORIDE [Concomitant]
     Active Substance: PALONOSETRON HYDROCHLORIDE
     Indication: Premedication
     Dosage: 250 MG, (ON DAY OF CHEMOTHERAPY)
     Route: 042
     Dates: start: 20210729
  21. DAFALGAN [Concomitant]
     Active Substance: ACETAMINOPHEN
     Indication: Back pain
     Dosage: 1 G, AS NEEDED
     Route: 048
     Dates: start: 2011
  22. MOVICOL [Concomitant]
     Active Substance: POLYETHYLENE GLYCOL 3350\POTASSIUM CHLORIDE\SODIUM BICARBONATE\SODIUM CHLORIDE
     Indication: Constipation
     Dosage: 1 SACHET, AS NEEDED
     Route: 048
     Dates: start: 2019
  23. OMEPRAZOLE [Concomitant]
     Active Substance: OMEPRAZOLE
     Indication: Gastrooesophageal reflux disease
     Dosage: 40 MG, DAILY
     Route: 048
     Dates: start: 2019
  24. OMEPRAZOLE [Concomitant]
     Active Substance: OMEPRAZOLE
     Indication: Gastrooesophageal reflux disease
  25. BUMETANIDE [Concomitant]
     Active Substance: BUMETANIDE
     Indication: Oedema peripheral
     Dosage: 1 MG, DAILY
     Route: 048
     Dates: start: 202105, end: 20211007
  26. BUMETANIDE [Concomitant]
     Active Substance: BUMETANIDE
     Indication: Oedema
  27. VESICARE [Concomitant]
     Active Substance: SOLIFENACIN SUCCINATE
     Indication: Prophylaxis
     Dosage: 5 MG, DAILY
     Route: 048
     Dates: start: 20210623
  28. VESICARE [Concomitant]
     Active Substance: SOLIFENACIN SUCCINATE
     Indication: Prophylaxis
  29. ZYRTEC [Concomitant]
     Active Substance: CETIRIZINE HYDROCHLORIDE
     Indication: Premedication
     Dosage: 10 MG, (DAY BEFORE AND DAY OF CHEMOTHERAPY)
     Route: 048
     Dates: start: 20210728
  30. BISOPROLOL [Concomitant]
     Active Substance: BISOPROLOL
     Indication: Hypertension
     Dosage: 5 MG, 1X/DAY
     Route: 048
     Dates: start: 2021, end: 20210828
  31. BISOPROLOL [Concomitant]
     Active Substance: BISOPROLOL
     Dosage: 5 MG, 1X/DAY
     Route: 048
     Dates: start: 20210921
  32. BISOPROLOL [Concomitant]
     Active Substance: BISOPROLOL
     Dosage: 3 MG, 1X/DAY
     Route: 048
     Dates: start: 20210831, end: 20210920
  33. IMODIUM [Concomitant]
     Active Substance: LOPERAMIDE HYDROCHLORIDE
     Indication: Diarrhoea
     Route: 048
     Dates: start: 20210831, end: 20211001
  34. LITICAN [ALIZAPRIDE] [Concomitant]
     Indication: Nausea
     Dosage: 50 MG, AS NEEDED
     Route: 048
     Dates: start: 20210902
  35. DIFLUCAN [Concomitant]
     Active Substance: FLUCONAZOLE
     Indication: Neutropenic sepsis
     Dosage: 200 MG, DAILY
     Route: 042
     Dates: start: 20210906, end: 20210920
  36. DIFLUCAN [Concomitant]
     Active Substance: FLUCONAZOLE
     Dosage: FREQ:12 H;
     Route: 048
     Dates: start: 20210701, end: 20210714
  37. INNOHEP [Concomitant]
     Active Substance: TINZAPARIN SODIUM
     Indication: Embolism
     Dosage: 7000 E, DAILY
     Route: 058
     Dates: start: 20210724, end: 20210927
  38. INNOHEP [Concomitant]
     Active Substance: TINZAPARIN SODIUM
     Dosage: 10000 E QD
     Route: 058
     Dates: start: 20211002
  39. DEXAMETHASONE [Concomitant]
     Active Substance: DEXAMETHASONE
     Indication: Premedication
     Dosage: 20 MG (DAY BEFORE AND DAY OF CHEMOTHERAPY)
     Route: 048
     Dates: start: 20210728
  40. VANCOMYCIN HYDROCHLORIDE [Concomitant]
     Active Substance: VANCOMYCIN HYDROCHLORIDE
     Indication: Neutropenic sepsis
     Dosage: FREQ:12 H;
     Route: 042
     Dates: start: 20210831, end: 20210903
  41. VANCOMYCIN HYDROCHLORIDE [Concomitant]
     Active Substance: VANCOMYCIN HYDROCHLORIDE
     Dosage: 2250 MG, SINGLE
     Route: 042
     Dates: start: 20210827, end: 20210827
  42. VANCOMYCIN HYDROCHLORIDE [Concomitant]
     Active Substance: VANCOMYCIN HYDROCHLORIDE
     Dosage: FREQ:12 H;
     Route: 042
     Dates: start: 20210913, end: 20210914
  43. VANCOMYCIN HYDROCHLORIDE [Concomitant]
     Active Substance: VANCOMYCIN HYDROCHLORIDE
     Dosage: FREQ:12 H;
     Route: 048
     Dates: start: 20210828, end: 20210830
  44. VANCOMYCIN HYDROCHLORIDE [Concomitant]
     Active Substance: VANCOMYCIN HYDROCHLORIDE
     Dosage: 150 MG, DAILY
     Route: 042
     Dates: start: 20210914, end: 20210915
  45. VANCOMYCIN HYDROCHLORIDE [Concomitant]
     Active Substance: VANCOMYCIN HYDROCHLORIDE
     Dosage: FREQ:12 H;
     Route: 042
     Dates: start: 20210907, end: 20210908
  46. VANCOMYCIN HYDROCHLORIDE [Concomitant]
     Active Substance: VANCOMYCIN HYDROCHLORIDE
     Dosage: 2075 MG, SINGLE
     Route: 042
     Dates: start: 20210906, end: 20210906
  47. ALDACTONE [Concomitant]
     Active Substance: SPIRONOLACTONE
     Indication: Oedema
     Dosage: 25 MG, DAILY
     Route: 048
     Dates: start: 20211008
  48. POTASSIUM CHLORIDE\RIBOFLAVIN 5^-PHOSPHATE SODIUM [Concomitant]
     Active Substance: POTASSIUM CHLORIDE\RIBOFLAVIN 5^-PHOSPHATE SODIUM
     Indication: Hypokalaemia
     Dosage: 20 MEQ, AS NEEDED
     Route: 042
     Dates: start: 20210927, end: 20210929
  49. POTASSIUM CHLORIDE\RIBOFLAVIN 5^-PHOSPHATE SODIUM [Concomitant]
     Active Substance: POTASSIUM CHLORIDE\RIBOFLAVIN 5^-PHOSPHATE SODIUM
     Dosage: 20 MEQ
     Route: 042
     Dates: start: 20211007, end: 20211007
  50. POTASSIUM CHLORIDE\RIBOFLAVIN 5^-PHOSPHATE SODIUM [Concomitant]
     Active Substance: POTASSIUM CHLORIDE\RIBOFLAVIN 5^-PHOSPHATE SODIUM
     Dosage: 20 MEQ, AS NEEDED
     Route: 042
     Dates: start: 20210903, end: 20210911
  51. POTASSIUM CHLORIDE\RIBOFLAVIN 5^-PHOSPHATE SODIUM [Concomitant]
     Active Substance: POTASSIUM CHLORIDE\RIBOFLAVIN 5^-PHOSPHATE SODIUM
     Dosage: 20 MEQ
     Route: 042
     Dates: start: 20210829, end: 20210831
  52. POTASSIUM CHLORIDE\RIBOFLAVIN 5^-PHOSPHATE SODIUM [Concomitant]
     Active Substance: POTASSIUM CHLORIDE\RIBOFLAVIN 5^-PHOSPHATE SODIUM
     Dosage: 40 MEQ, AS NEEDED
     Route: 042
     Dates: start: 20210904, end: 20210912
  53. POTASSIUM CHLORIDE\RIBOFLAVIN 5^-PHOSPHATE SODIUM [Concomitant]
     Active Substance: POTASSIUM CHLORIDE\RIBOFLAVIN 5^-PHOSPHATE SODIUM
     Dosage: 40 MEQ, DAILY
     Route: 042
     Dates: start: 20210827, end: 20210829
  54. POTASSIUM CHLORIDE\RIBOFLAVIN 5^-PHOSPHATE SODIUM [Concomitant]
     Active Substance: POTASSIUM CHLORIDE\RIBOFLAVIN 5^-PHOSPHATE SODIUM
     Dosage: 40 MEQ, DAILY
     Route: 042
     Dates: start: 20210928, end: 20210929
  55. GLYCERIN\MAGNESIUM SULFATE\PHENOL [Concomitant]
     Active Substance: GLYCERIN\MAGNESIUM SULFATE\PHENOL
     Indication: Hypomagnesaemia
     Dosage: 3 G
     Route: 042
     Dates: start: 20211007, end: 20211007
  56. GLYCERIN\MAGNESIUM SULFATE\PHENOL [Concomitant]
     Active Substance: GLYCERIN\MAGNESIUM SULFATE\PHENOL
     Dosage: 3 G, AS NEEDED
     Route: 042
     Dates: start: 20210827, end: 20210910
  57. NEULASTA [Concomitant]
     Active Substance: PEGFILGRASTIM
     Indication: Neutropenia
     Dosage: 6 MG, (FREQUENCY3MONTHS)
     Route: 058
     Dates: start: 20211008
  58. NEULASTA [Concomitant]
     Active Substance: PEGFILGRASTIM
     Dosage: 6 MG, SINGLE
     Route: 058
     Dates: start: 20210827, end: 20210827
  59. AUGMENTIN [Concomitant]
     Active Substance: AMOXICILLIN\CLAVULANATE POTASSIUM
     Indication: Neutropenic sepsis
     Dosage: 875 MG, (FREQUENCY 8HOURS)
     Route: 048
     Dates: start: 20211002, end: 20211005
  60. AUGMENTIN [Concomitant]
     Active Substance: AMOXICILLIN\CLAVULANATE POTASSIUM
     Dosage: 875 MG, (FREQUENCY 8HOURS)
     Route: 048
     Dates: start: 20210929, end: 20211001

REACTIONS (9)
  - General physical health deterioration [Fatal]
  - Neoplasm progression [Fatal]
  - Neutropenic sepsis [Recovered/Resolved]
  - Urosepsis [Not Recovered/Not Resolved]
  - Anaemia [Unknown]
  - White blood cell count decreased [Unknown]
  - Staphylococcus test positive [Unknown]
  - Blood potassium decreased [Unknown]
  - Gamma-glutamyltransferase increased [Unknown]

NARRATIVE: CASE EVENT DATE: 20210927
